FAERS Safety Report 4476745-4 (Version None)
Quarter: 2004Q4

REPORT INFORMATION
  Report Type: 
  Country: None (occurrence: None)
  Receive Date: 20041013
  Receipt Date: 20040923
  Transmission Date: 20050328
  Serious: Yes (Hospitalization, Other)
  Sender: FDA-Public Use
  Company Number: USA040979119

PATIENT
  Age: 51 Year
  Sex: Female

DRUGS (10)
  1. CYMBALTA [Suspect]
     Indication: DEPRESSION
     Dosage: 60 MG DAY
     Dates: start: 20040827, end: 20040901
  2. MIRAPEX (MIRAPEX) [Concomitant]
  3. KLONOPIN [Concomitant]
  4. FOSAMAX [Concomitant]
  5. ZANAFLEX [Concomitant]
  6. NEXIUM [Concomitant]
  7. LASIX [Concomitant]
  8. METOPROLOL [Concomitant]
  9. LIPITOR [Concomitant]
  10. OXYCODONE [Concomitant]

REACTIONS (5)
  - CONDITION AGGRAVATED [None]
  - DRUG INTERACTION [None]
  - DYSKINESIA [None]
  - RESTLESS LEGS SYNDROME [None]
  - TREATMENT NONCOMPLIANCE [None]
